FAERS Safety Report 7010420-7 (Version None)
Quarter: 2010Q3

REPORT INFORMATION
  Report Type: 
  Country: None (occurrence: None)
  Receive Date: 20100923
  Receipt Date: 20100913
  Transmission Date: 20110219
  Serious: Yes (Other)
  Sender: FDA-Public Use
  Company Number: US-PERRIGO-10US012975

PATIENT
  Sex: Male
  Weight: 81.633 kg

DRUGS (2)
  1. NAPROXEN SODIUM 220 MG 490 [Suspect]
     Indication: PLANTAR FASCIITIS
     Dosage: 220 MG, SINGLE
     Route: 048
     Dates: start: 20100911, end: 20100911
  2. ANTIHYPERTENSIVES [Concomitant]
     Indication: HYPERTENSION
     Dosage: UNK
     Route: 048

REACTIONS (7)
  - HAEMATEMESIS [None]
  - HYPERSENSITIVITY [None]
  - PETECHIAE [None]
  - RASH [None]
  - SKIN BURNING SENSATION [None]
  - SKIN WARM [None]
  - VOMITING PROJECTILE [None]
